FAERS Safety Report 14748659 (Version 1)
Quarter: 2018Q2

REPORT INFORMATION
  Report Type: Spontaneous
  Country: US (occurrence: US)
  Receive Date: 20180411
  Receipt Date: 20180411
  Transmission Date: 20180711
  Serious: No
  Sender: FDA-Public Use
  Company Number: US-AMGEN-USASP2017172457

PATIENT
  Age: 66 Year
  Sex: Female

DRUGS (1)
  1. PROLIA [Suspect]
     Active Substance: DENOSUMAB
     Indication: OSTEOPENIA
     Dosage: UNK
     Route: 065
     Dates: start: 20171025, end: 201711

REACTIONS (7)
  - Off label use [Unknown]
  - Headache [Recovering/Resolving]
  - Mastication disorder [Recovering/Resolving]
  - Sleep disorder [Recovering/Resolving]
  - Temporomandibular joint syndrome [Recovering/Resolving]
  - Swelling face [Recovering/Resolving]
  - Sensitivity of teeth [Recovering/Resolving]

NARRATIVE: CASE EVENT DATE: 20171025
